FAERS Safety Report 23134446 (Version 9)
Quarter: 2024Q4

REPORT INFORMATION
  Report Type: Spontaneous
  Country: IN (occurrence: IN)
  Receive Date: 20231101
  Receipt Date: 20241007
  Transmission Date: 20250115
  Serious: Yes (Other)
  Sender: PFIZER
  Company Number: IN-PFIZER INC-PV202300174263

PATIENT
  Age: 49 Year
  Sex: Female

DRUGS (4)
  1. LORLATINIB [Suspect]
     Active Substance: LORLATINIB
     Indication: Non-small cell lung cancer stage IV
     Dosage: 100 MG, 1X/DAY
     Route: 048
     Dates: start: 20231020
  2. LORLATINIB [Suspect]
     Active Substance: LORLATINIB
     Dosage: 75 MG, 1X/DAY
     Route: 048
  3. LORLATINIB [Suspect]
     Active Substance: LORLATINIB
     Dosage: 50 MG, 1X/DAY
     Route: 048
  4. FOLIC ACID [Concomitant]
     Active Substance: FOLIC ACID
     Dosage: UNK

REACTIONS (28)
  - Syncope [Unknown]
  - Weight fluctuation [Unknown]
  - Fatigue [Unknown]
  - Asthenia [Unknown]
  - Anxiety [Unknown]
  - Stress [Unknown]
  - Therapeutic response unexpected [Unknown]
  - Insomnia [Not Recovered/Not Resolved]
  - Lymphadenopathy [Not Recovered/Not Resolved]
  - Dyspnoea exertional [Recovered/Resolved]
  - Haemoglobin decreased [Not Recovered/Not Resolved]
  - Migraine [Not Recovered/Not Resolved]
  - Anger [Unknown]
  - Back pain [Unknown]
  - Abdominal rigidity [Unknown]
  - Laziness [Unknown]
  - Swelling [Unknown]
  - Abdominal distension [Unknown]
  - Cough [Unknown]
  - Blood cholesterol increased [Unknown]
  - Thyroid hormones increased [Unknown]
  - Hypokinesia [Not Recovered/Not Resolved]
  - Impaired work ability [Not Recovered/Not Resolved]
  - Respiration abnormal [Not Recovered/Not Resolved]
  - Blood folate decreased [Not Recovered/Not Resolved]
  - Pharyngeal mass [Not Recovered/Not Resolved]
  - Pain [Recovering/Resolving]
  - Weight increased [Not Recovered/Not Resolved]
